FAERS Safety Report 4729450-0 (Version None)
Quarter: 2005Q3

REPORT INFORMATION
  Report Type: 
  Country: None (occurrence: None)
  Receive Date: 20050728
  Receipt Date: 20050721
  Transmission Date: 20060218
  Serious: Yes (Hospitalization)
  Sender: FDA-Public Use
  Company Number: 214026

PATIENT
  Age: 53 Year
  Sex: Female
  Weight: 58.5 kg

DRUGS (4)
  1. OMALIZUMAB (OMALIZUMAB) PWDR + SOLVENT, INJECTION SOLN, 150MG [Suspect]
     Indication: ASTHMA
     Dosage: 150 MG, Q4W, SUBCUTANEOUS
     Route: 058
     Dates: start: 20040907
  2. ADVAIR (FLUTICASONE PROPIONATE, SALMETEROL,XINAFOATE) [Concomitant]
  3. ALLEGRA-D [Concomitant]
  4. SINGULAIR [Concomitant]

REACTIONS (8)
  - DIZZINESS [None]
  - DYSPHAGIA [None]
  - GASTRITIS [None]
  - GASTROOESOPHAGEAL REFLUX DISEASE [None]
  - NAUSEA [None]
  - NEUROPATHY [None]
  - OESOPHAGEAL STENOSIS [None]
  - SYNCOPE VASOVAGAL [None]
